FAERS Safety Report 13372988 (Version 1)
Quarter: 2017Q1

REPORT INFORMATION
  Report Type: Spontaneous
  Country: US (occurrence: US)
  Receive Date: 20170325
  Receipt Date: 20170325
  Transmission Date: 20170429
  Serious: Yes (Hospitalization)
  Sender: FDA-Public Use
  Company Number: None

PATIENT
  Age: 69 Year
  Sex: Female
  Weight: 128 kg

DRUGS (22)
  1. WARFARIN [Suspect]
     Active Substance: WARFARIN
     Indication: ATRIAL FIBRILLATION
     Route: 048
  2. PROBIOTIC [Concomitant]
     Active Substance: PROBIOTICS NOS
  3. POTASSIUM CHLORIDE. [Concomitant]
     Active Substance: POTASSIUM CHLORIDE
  4. BUDESONIDE. [Concomitant]
     Active Substance: BUDESONIDE
  5. ESCITALOPRAM [Concomitant]
     Active Substance: ESCITALOPRAM OXALATE
  6. PREMARIN CREAM [Concomitant]
  7. GUAIFENESIN. [Concomitant]
     Active Substance: GUAIFENESIN
  8. MULTIVITAMIN [Concomitant]
     Active Substance: VITAMINS
  9. ALBUTEROL INHALER [Concomitant]
     Active Substance: ALBUTEROL
  10. DIPHENHYDRAMINE. [Concomitant]
     Active Substance: DIPHENHYDRAMINE
  11. GABAPENTIN. [Concomitant]
     Active Substance: GABAPENTIN
  12. SYMBICORT [Concomitant]
     Active Substance: BUDESONIDE\FORMOTEROL FUMARATE DIHYDRATE
  13. LOPERAMIDE [Concomitant]
     Active Substance: LOPERAMIDE
  14. PROBENACID [Concomitant]
  15. FUROSEMIDE. [Concomitant]
     Active Substance: FUROSEMIDE
  16. CARVEDILOL. [Concomitant]
     Active Substance: CARVEDILOL
  17. MAGNESIUM [Concomitant]
     Active Substance: MAGNESIUM
  18. APAP [Concomitant]
     Active Substance: ACETAMINOPHEN
  19. FEBUXOSTAT. [Concomitant]
     Active Substance: FEBUXOSTAT
  20. FOLIC ACID. [Concomitant]
     Active Substance: FOLIC ACID
  21. FERROUS SULFATE. [Concomitant]
     Active Substance: FERROUS SULFATE
  22. PANTOPRAZOLE [Concomitant]
     Active Substance: PANTOPRAZOLE SODIUM

REACTIONS (9)
  - Pain in extremity [None]
  - Swelling [None]
  - Haemoglobin abnormal [None]
  - Skin discolouration [None]
  - Myalgia [None]
  - Gout [None]
  - Condition aggravated [None]
  - International normalised ratio increased [None]
  - Haematoma [None]

NARRATIVE: CASE EVENT DATE: 20160730
